FAERS Safety Report 7597603-2 (Version None)
Quarter: 2011Q3

REPORT INFORMATION
  Report Type: 
  Country: None (occurrence: None)
  Receive Date: 20110708
  Receipt Date: 20101014
  Transmission Date: 20111222
  Serious: Yes (Death, Hospitalization, Other)
  Sender: FDA-Public Use
  Company Number: US-JNJFOC-20101005178

PATIENT
  Age: 57 Year
  Sex: Male

DRUGS (1)
  1. ORTHOCLONE OKT3 [Suspect]
     Indication: PANCREAS TRANSPLANT REJECTION
     Route: 065

REACTIONS (1)
  - EPSTEIN-BARR VIRUS ASSOCIATED LYMPHOPROLIFERATIVE DISORDER [None]
